FAERS Safety Report 17922262 (Version 1)
Quarter: 2020Q2

REPORT INFORMATION
  Report Type: Spontaneous
  Country: US (occurrence: US)
  Receive Date: 20200620
  Receipt Date: 20200620
  Transmission Date: 20200714
  Serious: Yes (Other)
  Sender: FDA-Public Use
  Company Number: None

PATIENT
  Age: 60 Year
  Sex: Female
  Weight: 76.5 kg

DRUGS (1)
  1. NP THYROID [Suspect]
     Active Substance: LEVOTHYROXINE\LIOTHYRONINE
     Indication: HYPOTHYROIDISM
     Route: 048
     Dates: start: 20200430

REACTIONS (5)
  - Heart rate increased [None]
  - Fatigue [None]
  - Product formulation issue [None]
  - Blood pressure increased [None]
  - Weight decreased [None]

NARRATIVE: CASE EVENT DATE: 20200619
